APPROVED DRUG PRODUCT: GABAPENTIN
Active Ingredient: GABAPENTIN
Strength: 100MG
Dosage Form/Route: CAPSULE;ORAL
Application: A091008 | Product #001
Applicant: CHARTWELL RX SCIENCES LLC
Approved: Oct 26, 2017 | RLD: No | RS: No | Type: DISCN